FAERS Safety Report 6844391-0 (Version None)
Quarter: 2010Q3

REPORT INFORMATION
  Report Type: 
  Country: None (occurrence: None)
  Receive Date: 20100715
  Receipt Date: 20100707
  Transmission Date: 20110219
  Serious: Yes (Death)
  Sender: FDA-Public Use
  Company Number: US-GILEAD-2010-0029985

PATIENT
  Sex: Female
  Weight: 66.284 kg

DRUGS (20)
  1. LETAIRIS [Suspect]
     Indication: PULMONARY ARTERIAL HYPERTENSION
     Route: 048
     Dates: start: 20090615
  2. OXYGEN [Concomitant]
  3. ASPIRIN [Concomitant]
  4. LASIX [Concomitant]
  5. METOPROLOL TARTRATE [Concomitant]
  6. LIPITOR [Concomitant]
  7. ALBUTEROL [Concomitant]
  8. PROVENTIL [Concomitant]
  9. PREDNISONE [Concomitant]
  10. TARCEVA [Concomitant]
  11. AUGMENTIN '125' [Concomitant]
  12. ZAROXOLYN [Concomitant]
  13. CEFEPIME [Concomitant]
  14. SOLU-MEDROL [Concomitant]
  15. MUCINEX [Concomitant]
  16. OMEPRAZOLE [Concomitant]
  17. ACCOLATE [Concomitant]
  18. CALCIUM STOOL SOFTNER [Concomitant]
  19. CALCIUM [Concomitant]
  20. POTASSIUM CHLORIDE [Concomitant]

REACTIONS (1)
  - LUNG NEOPLASM MALIGNANT [None]
